FAERS Safety Report 9298410 (Version 1)
Quarter: 2013Q2

REPORT INFORMATION
  Report Type: Spontaneous
  Country: US (occurrence: US)
  Receive Date: 20130520
  Receipt Date: 20130520
  Transmission Date: 20140414
  Serious: Yes (Hospitalization)
  Sender: FDA-Public Use
  Company Number: US-BAYER-2013-060192

PATIENT
  Age: 35 Year
  Sex: Female
  Weight: 61.22 kg

DRUGS (8)
  1. YAZ [Suspect]
     Dosage: UNK
  2. BEYAZ [Suspect]
     Dosage: UNK
  3. ZITHROMAX [Concomitant]
     Dosage: 500 MG, FOR 10 DAYS
     Route: 048
     Dates: start: 20110909
  4. XOPENEX [Concomitant]
     Dosage: 2 PUFFS 4 TIMES DAILY FOR 1 WEEK
     Dates: start: 20110909
  5. PREDNISONE [Concomitant]
     Dosage: 20 MG, 1 BID FOR 5 DAYS
     Route: 048
     Dates: start: 20110909
  6. SKELAXIN [Concomitant]
     Dosage: 800 MG 1 TWICE DAILY AS NEEDED
     Route: 048
     Dates: start: 20110909
  7. VALIUM [Concomitant]
     Dosage: UNK
     Dates: start: 20110909
  8. LEVAQUIN [Concomitant]
     Dosage: 500 MG, QD
     Route: 048
     Dates: start: 20110916

REACTIONS (1)
  - Pulmonary embolism [None]
